FAERS Safety Report 8921723 (Version 2)
Quarter: 2012Q4

REPORT INFORMATION
  Report Type: Report from Study
  Country: US (occurrence: US)
  Receive Date: 20121121
  Receipt Date: 20121127
  Transmission Date: 20130627
  Serious: Yes (Hospitalization)
  Sender: FDA-Public Use
  Company Number: US-JNJFOC-20121109339

PATIENT
  Sex: Male
  Weight: 53.6 kg

DRUGS (15)
  1. REMICADE [Suspect]
     Indication: CROHN^S DISEASE
     Route: 042
     Dates: start: 20111020, end: 20120608
  2. CIMZIA [Concomitant]
     Dates: start: 20121113
  3. CIMZIA [Concomitant]
     Dates: start: 201206
  4. 6-MERCAPTOPURINE [Concomitant]
  5. CALCIUM [Concomitant]
  6. MULTIPLE VITAMIN [Concomitant]
  7. E VITAMIN [Concomitant]
  8. ALBUTEROL [Concomitant]
  9. OMEPRAZOLE [Concomitant]
  10. NEURONTIN [Concomitant]
  11. CLOBETASOL OINTMENT [Concomitant]
  12. DESONIDE [Concomitant]
  13. LOTRIMIN [Concomitant]
  14. FLUTICASONE [Concomitant]
  15. MIRALAX [Concomitant]

REACTIONS (1)
  - Crohn^s disease [Recovered/Resolved]
